FAERS Safety Report 5000869-6 (Version None)
Quarter: 2006Q2

REPORT INFORMATION
  Report Type: 
  Country: None (occurrence: None)
  Receive Date: 20060512
  Receipt Date: 20050317
  Transmission Date: 20061013
  Serious: No
  Sender: FDA-Public Use
  Company Number: US-GLAXOSMITHKLINE-A0550265A

PATIENT
  Sex: Female

DRUGS (4)
  1. RELAFEN [Suspect]
     Indication: OSTEOARTHRITIS
     Dosage: 500MG TWICE PER DAY
     Route: 048
     Dates: start: 20041101, end: 20050201
  2. MENEST [Concomitant]
  3. DIAZIDE [Concomitant]
  4. LOVASTATIN [Concomitant]

REACTIONS (1)
  - DRUG INEFFECTIVE [None]
